FAERS Safety Report 9015671 (Version 1)
Quarter: 2013Q1

REPORT INFORMATION
  Report Type: Spontaneous
  Country: DE (occurrence: None)
  Receive Date: 20130102
  Receipt Date: 20130102
  Transmission Date: 20140127
  Serious: Yes (Hospitalization)
  Sender: FDA-Public Use
  Company Number: DSA_61632_2012

PATIENT
  Age: 82 Year
  Sex: Male

DRUGS (4)
  1. CICLOPIROX [Suspect]
     Indication: PRODUCT USED FOR UNKNOWN INDICATION
     Dosage: (8 % 2X/WEEK CUTANEOUS)
  2. BISOPROLOL [Concomitant]
  3. DIGITOXIN [Concomitant]
  4. PHENPROCOUMON [Concomitant]

REACTIONS (2)
  - Feeling hot [None]
  - Pyrexia [None]
